FAERS Safety Report 21947746 (Version 1)
Quarter: 2023Q1

REPORT INFORMATION
  Report Type: Spontaneous
  Country: MY (occurrence: MY)
  Receive Date: 20230203
  Receipt Date: 20230203
  Transmission Date: 20230417
  Serious: Yes (Death)
  Sender: FDA-Public Use
  Company Number: MY-ABBVIE-4293226

PATIENT
  Age: 60 Year

DRUGS (3)
  1. VENCLEXTA [Suspect]
     Active Substance: VENETOCLAX
     Indication: Acute myeloid leukaemia
     Dosage: FREQUENCY TEXT: ONCE DAILY
     Route: 048
     Dates: start: 20220919, end: 202301
  2. DECITABINE [Concomitant]
     Active Substance: DECITABINE
     Indication: Product used for unknown indication
     Dates: start: 20220919, end: 202301
  3. VORICONAZOLE [Concomitant]
     Active Substance: VORICONAZOLE
     Indication: Product used for unknown indication
     Dates: start: 20220919, end: 202301

REACTIONS (2)
  - Acute myeloid leukaemia [Fatal]
  - Haemorrhage intracranial [Fatal]
